FAERS Safety Report 7119270-4 (Version None)
Quarter: 2010Q4

REPORT INFORMATION
  Report Type: 
  Country: None (occurrence: None)
  Receive Date: 20101123
  Receipt Date: 20101111
  Transmission Date: 20110411
  Serious: Yes (Hospitalization, Other)
  Sender: FDA-Public Use
  Company Number: US-ELI_LILLY_AND_COMPANY-US201011003773

PATIENT
  Sex: Male

DRUGS (6)
  1. HUMALOG [Suspect]
     Indication: DIABETES MELLITUS
     Dates: start: 20100501
  2. HUMALOG [Suspect]
     Dosage: 20 U, EACH MORNING
     Dates: start: 20101110
  3. HUMALOG [Suspect]
     Dosage: 10 U, OTHER
     Dates: start: 20101110
  4. HUMALOG [Suspect]
     Dosage: 25 U, EACH EVENING
     Dates: start: 20101110
  5. HUMALOG [Suspect]
  6. LANTUS [Concomitant]

REACTIONS (14)
  - BLOOD DISORDER [None]
  - BLOOD GLUCOSE INCREASED [None]
  - CARDIOVASCULAR DISORDER [None]
  - CATARACT [None]
  - DEVICE MALFUNCTION [None]
  - DIABETES MELLITUS INADEQUATE CONTROL [None]
  - GOUT [None]
  - INCORRECT DOSE ADMINISTERED [None]
  - KNEE OPERATION [None]
  - MEMORY IMPAIRMENT [None]
  - PRODUCT QUALITY ISSUE [None]
  - PROSTATE CANCER [None]
  - RENAL TRANSPLANT [None]
  - VISUAL ACUITY REDUCED [None]
